FAERS Safety Report 8969782 (Version 1)
Quarter: 2012Q4

REPORT INFORMATION
  Report Type: 
  Country: FR (occurrence: FR)
  Receive Date: 20121218
  Receipt Date: 20121218
  Transmission Date: 20130627
  Serious: Yes (Hospitalization)
  Sender: FDA-Public Use
  Company Number: PHHY2012FR115717

PATIENT
  Age: 60 Year
  Sex: Male

DRUGS (1)
  1. TASIGNA [Suspect]
     Dosage: 600 mg, QD
     Route: 048
     Dates: start: 2011

REACTIONS (3)
  - Coronary artery disease [Unknown]
  - Libido decreased [Unknown]
  - Erectile dysfunction [Unknown]
